FAERS Safety Report 9512306 (Version 1)
Quarter: 2013Q3

REPORT INFORMATION
  Report Type: Spontaneous
  Country: US (occurrence: US)
  Receive Date: 20130910
  Receipt Date: 20130910
  Transmission Date: 20140515
  Serious: No
  Sender: FDA-Public Use
  Company Number: -SAAVPROD-BMS17002718

PATIENT
  Sex: Female

DRUGS (3)
  1. IRBESARTAN [Suspect]
  2. CLOPIDOGREL BISULFATE [Suspect]
  3. ATORVASTATIN CALCIUM [Suspect]
     Dosage: 1DF20MG 1ST DAY,2ND DAY-40MG

REACTIONS (4)
  - Dry mouth [Unknown]
  - Ageusia [Unknown]
  - Arthralgia [Unknown]
  - Abdominal pain lower [Unknown]
